FAERS Safety Report 7594822-6 (Version None)
Quarter: 2011Q3

REPORT INFORMATION
  Report Type: 
  Country: None (occurrence: None)
  Receive Date: 20110707
  Receipt Date: 20110627
  Transmission Date: 20111222
  Serious: Yes (Hospitalization)
  Sender: FDA-Public Use
  Company Number: US-ELI_LILLY_AND_COMPANY-US201106007810

PATIENT
  Sex: Female

DRUGS (6)
  1. BYETTA [Suspect]
     Dosage: 5 UG, BID
     Route: 058
     Dates: start: 20110401, end: 20110620
  2. GLIMEPIRIDE [Concomitant]
     Indication: TYPE 2 DIABETES MELLITUS
     Dosage: 4 MG, EACH MORNING
     Route: 058
  3. BYETTA [Suspect]
     Indication: TYPE 2 DIABETES MELLITUS
     Dosage: 5 UG, BID
     Route: 058
  4. BYETTA [Suspect]
     Dosage: 10 UG, UNK
     Route: 058
     Dates: end: 20110401
  5. BYETTA [Suspect]
     Dosage: 5 UG, QD
     Route: 058
     Dates: start: 20110620
  6. METFORMIN HCL [Concomitant]
     Indication: TYPE 2 DIABETES MELLITUS
     Dosage: 1000 MG, BID

REACTIONS (9)
  - URINARY TRACT INFECTION [None]
  - NAUSEA [None]
  - SOMNOLENCE [None]
  - DEHYDRATION [None]
  - VERTIGO [None]
  - DYSSTASIA [None]
  - VOMITING [None]
  - FATIGUE [None]
  - BLOOD GLUCOSE DECREASED [None]
